FAERS Safety Report 11030200 (Version 1)
Quarter: 2015Q2

REPORT INFORMATION
  Report Type: Spontaneous
  Country: JP (occurrence: JP)
  Receive Date: 20150415
  Receipt Date: 20150415
  Transmission Date: 20150821
  Serious: Yes (Life-Threatening, Hospitalization, Other)
  Sender: FDA-Public Use
  Company Number: JP-ROCHE-1563868

PATIENT
  Age: 76 Year
  Sex: Female
  Weight: 52 kg

DRUGS (6)
  1. MAGMITT [Concomitant]
     Active Substance: MAGNESIUM OXIDE
     Indication: COLON CANCER
     Route: 048
     Dates: start: 20141214
  2. PYRIDOXAL PHOSPHATE [Concomitant]
     Active Substance: PYRIDOXAL PHOSPHATE
     Indication: PROPHYLAXIS
     Route: 048
     Dates: start: 20150123
  3. PLETAAL [Concomitant]
     Active Substance: CILOSTAZOL
     Route: 048
     Dates: start: 201302
  4. MAINTATE [Concomitant]
     Active Substance: BISOPROLOL FUMARATE
     Indication: HYPERTENSION
     Route: 048
     Dates: start: 200603
  5. XELODA [Suspect]
     Active Substance: CAPECITABINE
     Indication: COLON CANCER
     Route: 048
     Dates: start: 20150123, end: 20150130
  6. TSUMURA DAIKENCHUTO [Concomitant]
     Indication: COLON CANCER
     Route: 048
     Dates: start: 20140214

REACTIONS (10)
  - Gastrointestinal disorder [Unknown]
  - Neutrophil count decreased [Recovered/Resolved]
  - Eating disorder [Unknown]
  - Pyrexia [Unknown]
  - Pulmonary embolism [Recovered/Resolved]
  - Embolism [Recovered/Resolved]
  - Stomatitis [Unknown]
  - Deep vein thrombosis [Recovered/Resolved]
  - Ascites [Unknown]
  - Nasopharyngitis [Recovering/Resolving]

NARRATIVE: CASE EVENT DATE: 20150131
